FAERS Safety Report 4439026-0 (Version None)
Quarter: 2004Q3

REPORT INFORMATION
  Report Type: 
  Country: None (occurrence: None)
  Receive Date: 20040901
  Receipt Date: 20020530
  Transmission Date: 20050211
  Serious: Yes (Hospitalization)
  Sender: FDA-Public Use
  Company Number: PHBS2002JP06578

PATIENT
  Age: 54 Year
  Sex: Female

DRUGS (7)
  1. LAMISIL [Suspect]
     Indication: NAIL TINEA
     Dosage: 125 MG/DAY
     Route: 048
     Dates: start: 20020405, end: 20020516
  2. HYPEN [Suspect]
     Dosage: 400 MG/DAY
     Route: 048
     Dates: start: 20020513, end: 20020522
  3. LOXONIN [Concomitant]
     Dosage: 180 MG/DAY
     Route: 048
     Dates: start: 20020523, end: 20020524
  4. GASLON [Suspect]
     Route: 048
     Dates: start: 20020513, end: 20020522
  5. SERASTAR [Suspect]
     Route: 062
     Dates: start: 20020513, end: 20020522
  6. VOLTAREN [Suspect]
     Route: 061
     Dates: start: 20020513, end: 20020522
  7. SELBEX [Concomitant]
     Dates: start: 20020522, end: 20020523

REACTIONS (8)
  - ALANINE AMINOTRANSFERASE INCREASED [None]
  - ASPARTATE AMINOTRANSFERASE INCREASED [None]
  - BLOOD ALKALINE PHOSPHATASE INCREASED [None]
  - BLOOD CREATINE PHOSPHOKINASE INCREASED [None]
  - BLOOD LACTATE DEHYDROGENASE INCREASED [None]
  - GAMMA-GLUTAMYLTRANSFERASE INCREASED [None]
  - HEPATIC FUNCTION ABNORMAL [None]
  - LIVER DISORDER [None]
